FAERS Safety Report 22627679 (Version 6)
Quarter: 2024Q3

REPORT INFORMATION
  Report Type: Spontaneous
  Country: US (occurrence: US)
  Receive Date: 20230622
  Receipt Date: 20240705
  Transmission Date: 20241017
  Serious: Yes (Hospitalization, Other)
  Sender: UCB
  Company Number: US-UCBSA-2023030835

PATIENT
  Sex: Male
  Weight: 117.91 kg

DRUGS (1)
  1. CIMZIA [Suspect]
     Active Substance: CERTOLIZUMAB PEGOL
     Indication: Rheumatoid arthritis
     Dosage: 400 MILLIGRAM, EV 4 WEEKS
     Route: 058
     Dates: start: 202210

REACTIONS (8)
  - Gastrooesophageal reflux disease [Unknown]
  - Eye operation [Unknown]
  - Intervertebral disc protrusion [Unknown]
  - Intervertebral disc operation [Unknown]
  - Cardiac disorder [Unknown]
  - Gait inability [Unknown]
  - Cardiac monitoring [Unknown]
  - Drug ineffective [Unknown]
